FAERS Safety Report 24328449 (Version 1)
Quarter: 2024Q3

REPORT INFORMATION
  Report Type: Spontaneous
  Country: CN (occurrence: CN)
  Receive Date: 20240917
  Receipt Date: 20240917
  Transmission Date: 20241016
  Serious: Yes (Life-Threatening, Hospitalization, Other)
  Sender: PFIZER
  Company Number: CN-PFIZER INC-PV202400120820

PATIENT
  Age: 56 Year
  Sex: Male
  Weight: 82 kg

DRUGS (4)
  1. TYGACIL [Suspect]
     Active Substance: TIGECYCLINE
     Indication: Soft tissue infection
     Dosage: 100 MG, 2X/DAY
     Route: 041
     Dates: start: 20240824, end: 20240829
  2. TYGACIL [Suspect]
     Active Substance: TIGECYCLINE
     Indication: Anti-infective therapy
     Dosage: 50 MG, 2X/DAY
     Route: 041
     Dates: start: 20240829, end: 20240904
  3. SODIUM CHLORIDE [Concomitant]
     Active Substance: SODIUM CHLORIDE
     Indication: Vehicle solution use
     Dosage: 100 ML, 2X/DAY
     Route: 041
     Dates: start: 20240824, end: 20240829
  4. SODIUM CHLORIDE [Concomitant]
     Active Substance: SODIUM CHLORIDE
     Dosage: 100 ML, 2X/DAY
     Route: 041
     Dates: start: 20240829, end: 20240904

REACTIONS (5)
  - Lipase increased [Recovering/Resolving]
  - Hepatic function abnormal [Recovering/Resolving]
  - Metabolic disorder [Recovering/Resolving]
  - Malnutrition [Recovering/Resolving]
  - Off label use [Unknown]

NARRATIVE: CASE EVENT DATE: 20240824
